FAERS Safety Report 5201676-1 (Version None)
Quarter: 2007Q1

REPORT INFORMATION
  Report Type: 
  Country: None (occurrence: None)
  Receive Date: 20070104
  Receipt Date: 20061228
  Transmission Date: 20070707
  Serious: Yes (Hospitalization)
  Sender: FDA-Public Use
  Company Number: SU-2006-005664

PATIENT
  Age: 44 Year
  Sex: Female

DRUGS (6)
  1. WELCHOL [Suspect]
     Indication: HYPERCHOLESTEROLAEMIA
     Dosage: 150 MG BID PO
     Route: 048
     Dates: start: 20060915, end: 20061128
  2. VASOTEC [Concomitant]
  3. PROTONIX [Concomitant]
  4. HYDROCHLOTOHIAZIDE [Concomitant]
  5. CLONIDINE [Concomitant]
  6. INSULIN [Concomitant]

REACTIONS (2)
  - RENAL FAILURE ACUTE [None]
  - RHABDOMYOLYSIS [None]
